FAERS Safety Report 9778820 (Version 1)
Quarter: 2013Q4

REPORT INFORMATION
  Report Type: Spontaneous
  Country: FR (occurrence: FR)
  Receive Date: 20131223
  Receipt Date: 20131223
  Transmission Date: 20140711
  Serious: Yes (Death, Hospitalization, Other)
  Sender: FDA-Public Use
  Company Number: FR-ELI_LILLY_AND_COMPANY-FR201312005542

PATIENT
  Age: 75 Year
  Sex: Male
  Weight: 94 kg

DRUGS (2)
  1. ALIMTA [Suspect]
     Indication: LUNG ADENOCARCINOMA
     Dosage: UNK
     Dates: start: 20130620
  2. ALIMTA [Suspect]
     Dosage: 750 MG, SINGLE
     Route: 042
     Dates: start: 20130805, end: 20130805

REACTIONS (4)
  - Interstitial lung disease [Fatal]
  - Malignant neoplasm progression [Fatal]
  - Prostatitis [Unknown]
  - Febrile bone marrow aplasia [Unknown]
